FAERS Safety Report 15937845 (Version 3)
Quarter: 2019Q1

REPORT INFORMATION
  Report Type: Spontaneous
  Country: US (occurrence: US)
  Receive Date: 20190208
  Receipt Date: 20190220
  Transmission Date: 20190417
  Serious: Yes (Hospitalization)
  Sender: FDA-Public Use
  Company Number: US-ELI_LILLY_AND_COMPANY-US201901014189

PATIENT
  Age: 73 Year
  Sex: Female

DRUGS (1)
  1. FORTEO [Suspect]
     Active Substance: TERIPARATIDE
     Indication: OSTEOPOROSIS
     Dosage: UNK UNK, UNKNOWN
     Route: 065
     Dates: start: 20190118

REACTIONS (15)
  - Groin pain [Unknown]
  - Fatigue [Unknown]
  - Skeletal injury [Unknown]
  - Gastrooesophageal reflux disease [Unknown]
  - Musculoskeletal pain [Unknown]
  - Rhinorrhoea [Unknown]
  - Boredom [Unknown]
  - Ligament sprain [Unknown]
  - Injury associated with device [Recovered/Resolved]
  - Pain [Unknown]
  - Joint injury [Unknown]
  - Road traffic accident [Unknown]
  - Influenza [Unknown]
  - Sleep disorder due to general medical condition, insomnia type [Unknown]
  - Nausea [Unknown]

NARRATIVE: CASE EVENT DATE: 2018
